FAERS Safety Report 9952323 (Version 1)
Quarter: 2014Q1

REPORT INFORMATION
  Report Type: Report from Study
  Country: US (occurrence: US)
  Receive Date: 20140304
  Receipt Date: 20140304
  Transmission Date: 20141002
  Serious: No
  Sender: FDA-Public Use
  Company Number: US-ABBVIE-13P-163-1073573-00

PATIENT
  Age: 75 Year
  Sex: Female

DRUGS (17)
  1. HUMIRA [Suspect]
     Indication: PSORIASIS
     Route: 058
     Dates: start: 20130328
  2. ALPRAZOLAM [Concomitant]
     Indication: ANXIETY
  3. AMBIEN ER [Concomitant]
     Indication: INSOMNIA
     Dosage: EVERY PM
  4. AMLODIPINE [Concomitant]
     Indication: HYPERTENSION
  5. ATENOLOL [Concomitant]
     Indication: HYPERTENSION
  6. DIOVAN [Concomitant]
     Indication: HYPERTENSION
  7. HCTZ [Concomitant]
     Indication: HYPERTENSION
  8. LANTUS INSULIN [Concomitant]
     Indication: DIABETES MELLITUS
  9. LEVOTHYROXINE [Concomitant]
     Indication: THYROID DISORDER
  10. LIPITOR [Concomitant]
     Indication: BLOOD CHOLESTEROL
     Dosage: EVERY PM
  11. LORATADINE [Concomitant]
     Indication: HYPERSENSITIVITY
  12. NABUMETONE [Concomitant]
     Indication: OSTEOARTHRITIS
  13. NOVOLOG INSULIN [Concomitant]
     Indication: DIABETES MELLITUS
  14. NOVOLOG INSULIN [Concomitant]
     Indication: DIABETES MELLITUS
  15. OMEPRAZOLE [Concomitant]
     Indication: GASTROOESOPHAGEAL REFLUX DISEASE
  16. TRAMADOL [Concomitant]
     Indication: PAIN
  17. TRILIPIX [Concomitant]
     Indication: BLOOD CHOLESTEROL

REACTIONS (3)
  - Wrong technique in drug usage process [Not Recovered/Not Resolved]
  - Injury associated with device [Not Recovered/Not Resolved]
  - Pain in extremity [Not Recovered/Not Resolved]
